FAERS Safety Report 25454308 (Version 1)
Quarter: 2025Q2

REPORT INFORMATION
  Report Type: Report from Study
  Country: GB (occurrence: GB)
  Receive Date: 20250619
  Receipt Date: 20250619
  Transmission Date: 20250716
  Serious: Yes (Hospitalization)
  Sender: SAMSUNG BIOEPIS
  Company Number: GB-SAMSUNG BIOEPIS-SB-2025-20942

PATIENT
  Sex: Female

DRUGS (1)
  1. PYZCHIVA [Suspect]
     Active Substance: USTEKINUMAB-TTWE
     Indication: Psoriatic arthropathy
     Route: 058

REACTIONS (6)
  - Tachycardia [Unknown]
  - Dyspnoea [Unknown]
  - Dysphagia [Unknown]
  - Blood test abnormal [Unknown]
  - Hypertension [Unknown]
  - Urticaria [Unknown]
